FAERS Safety Report 8125645-7 (Version None)
Quarter: 2012Q1

REPORT INFORMATION
  Report Type: 
  Country: None (occurrence: None)
  Receive Date: 20120206
  Receipt Date: 20120126
  Transmission Date: 20120608
  Serious: Yes (Other)
  Sender: FDA-Public Use
  Company Number: 1000027560

PATIENT
  Age: 71 Year
  Sex: Male

DRUGS (7)
  1. FOSFOMYCIN (FOSFOMYCIN TROMETAMOL) (3 GRAM, GRANULATE) [Suspect]
     Indication: STRANGURY
     Dosage: (3 GM,ONCE), ORAL
     Route: 048
     Dates: start: 20120113, end: 20120113
  2. TOLEP (OXCARBAZEPINE) [Concomitant]
  3. CAPOTEN [Concomitant]
  4. OMEPRAZOLE [Concomitant]
  5. TRIATEC (CODEINE PHOSPHATE, PARACETAMOL) [Concomitant]
  6. DIAMICRON (GLICLAZIDE) [Concomitant]
  7. LASIX (FRUSEMIDE) [Concomitant]

REACTIONS (2)
  - DERMATITIS BULLOUS [None]
  - PRURITUS [None]
